FAERS Safety Report 18747095 (Version 2)
Quarter: 2021Q1

REPORT INFORMATION
  Report Type: Other
  Country: US (occurrence: US)
  Receive Date: 20210115
  Receipt Date: 20210127
  Transmission Date: 20210419
  Serious: Yes (Hospitalization)
  Sender: FDA-Public Use
  Company Number: US-TENSHI KAIZEN PRIVATE LIMITED-2105379

PATIENT
  Age: 11 Year
  Sex: Female
  Weight: 30 kg

DRUGS (15)
  1. DIPHENHYDRAMINE. [Suspect]
     Active Substance: DIPHENHYDRAMINE
     Route: 065
  2. TIME RETURN MELATONIN [Suspect]
     Active Substance: ADENOSINE\NIACINAMIDE
     Route: 048
  3. LEVETIRACETAM. [Concomitant]
     Active Substance: LEVETIRACETAM
     Route: 065
  4. BACLOFEN. [Concomitant]
     Active Substance: BACLOFEN
     Route: 048
  5. CLONIDINE. [Suspect]
     Active Substance: CLONIDINE
     Route: 048
  6. VALPROIC ACID. [Suspect]
     Active Substance: VALPROIC ACID
     Route: 048
  7. GLYCOPYRROLATE. [Concomitant]
     Active Substance: GLYCOPYRROLATE
     Route: 048
  8. ONFI [Suspect]
     Active Substance: CLOBAZAM
     Route: 048
  9. ONFI [Suspect]
     Active Substance: CLOBAZAM
     Route: 048
  10. CLONAZEPAM. [Concomitant]
     Active Substance: CLONAZEPAM
     Route: 065
  11. CLONIDINE. [Suspect]
     Active Substance: CLONIDINE
     Route: 048
  12. LORAZEPAM. [Concomitant]
     Active Substance: LORAZEPAM
     Route: 048
  13. ONFI [Suspect]
     Active Substance: CLOBAZAM
     Route: 048
  14. LORATADINE ORALLY DISINTEGRATING TABLETS USP, 10 MG (OTC) (ANDA 213294 [Suspect]
     Active Substance: LORATADINE
     Indication: PRODUCT USED FOR UNKNOWN INDICATION
     Route: 048
  15. ONFI [Suspect]
     Active Substance: CLOBAZAM
     Route: 048

REACTIONS (1)
  - Hypersomnia [Recovered/Resolved]
